FAERS Safety Report 14365328 (Version 35)
Quarter: 2022Q3

REPORT INFORMATION
  Report Type: Spontaneous
  Country: GB (occurrence: GB)
  Receive Date: 20180108
  Receipt Date: 20220704
  Transmission Date: 20221027
  Serious: Yes (Other)
  Sender: FDA-Public Use
  Company Number: GB-BAXTER-2017BAX039111

PATIENT
  Age: 73 Year
  Sex: Female
  Weight: 50 kg

DRUGS (147)
  1. DEXAMETHASONE [Suspect]
     Active Substance: DEXAMETHASONE
     Indication: Plasma cell leukaemia
     Dosage: 20 MG, QD,MEDICATION ERROR, MISUSE, ABUSE, OFF LABEL USE
     Route: 065
     Dates: start: 20171102, end: 20171106
  2. DEXAMETHASONE [Suspect]
     Active Substance: DEXAMETHASONE
     Route: 065
  3. DEXAMETHASONE [Suspect]
     Active Substance: DEXAMETHASONE
     Dosage: 20 MILLIGRAM DAILY
     Route: 065
     Dates: start: 20171102, end: 20171106
  4. DEXAMETHASONE [Suspect]
     Active Substance: DEXAMETHASONE
     Route: 065
  5. DEXAMETHASONE [Suspect]
     Active Substance: DEXAMETHASONE
     Route: 065
  6. DEXAMETHASONE [Suspect]
     Active Substance: DEXAMETHASONE
     Dosage: 100 UNSPECIFIED UNIT
     Route: 065
  7. DEXAMETHASONE [Suspect]
     Active Substance: DEXAMETHASONE
     Route: 065
  8. METOCLOPRAMIDE [Suspect]
     Active Substance: METOCLOPRAMIDE
     Indication: Product used for unknown indication
     Dosage: 10 MILLIGRAM, AS NECESSARY MEDICATION ERROR, MISUSE, ABUSE, OFF LABEL USE
     Route: 065
  9. METOCLOPRAMIDE [Suspect]
     Active Substance: METOCLOPRAMIDE
     Dosage: QD AS NECESSARY
     Route: 065
  10. METOCLOPRAMIDE HYDROCHLORIDE [Suspect]
     Active Substance: METOCLOPRAMIDE HYDROCHLORIDE
     Indication: Product used for unknown indication
     Dosage: 10 MILLIGRAM, AS NECESSARY MEDICATION ERROR, MISUSE, ABUSE, OFF LABEL USE
     Route: 065
  11. METOCLOPRAMIDE HYDROCHLORIDE [Suspect]
     Active Substance: METOCLOPRAMIDE HYDROCHLORIDE
     Dosage: QD AS NECESSARY
     Route: 065
  12. METOCLOPRAMIDE HYDROCHLORIDE [Suspect]
     Active Substance: METOCLOPRAMIDE HYDROCHLORIDE
     Dosage: QD AS NECESSARY
     Route: 065
  13. RAMIPRIL [Suspect]
     Active Substance: RAMIPRIL
     Indication: Product used for unknown indication
     Dosage: 10 MILLIGRAM, QD, ONCE A DAY, DOSAGE FORM: UNSPECIFIED,EVERY MORNING
     Route: 048
  14. RAMIPRIL [Suspect]
     Active Substance: RAMIPRIL
     Route: 065
  15. RAMIPRIL [Suspect]
     Active Substance: RAMIPRIL
     Route: 065
  16. RAMIPRIL [Suspect]
     Active Substance: RAMIPRIL
     Dosage: UNSPECIFIED EVERY MORNING
     Route: 065
  17. SODIUM CHLORIDE [Suspect]
     Active Substance: SODIUM CHLORIDE
     Indication: Medication dilution
     Dosage: DAY 1 OF CYCLE 2, VMP REGIMEN, COMPOUNDED WITH BORTEZOMIB (1); CYCLICAL
     Route: 041
     Dates: start: 20171103, end: 20171106
  18. SODIUM CHLORIDE [Suspect]
     Active Substance: SODIUM CHLORIDE
     Dosage: DAY 4 OF CYCLE 2, VMP REGIMEN, COMPOUNDED WITH BORTEZOMIB (1) ; CYCLICAL
     Route: 041
     Dates: start: 20171107, end: 201711
  19. SODIUM CHLORIDE [Suspect]
     Active Substance: SODIUM CHLORIDE
     Dosage: 1 CYCLE
     Route: 041
     Dates: start: 20171110, end: 20171110
  20. SODIUM CHLORIDE [Suspect]
     Active Substance: SODIUM CHLORIDE
     Dosage: DAY 8 OF CYCLE 2, VMP REGIMEN, COMPOUNDED WITH BORTEZOMIB (1) ; CYCLICAL
     Route: 041
     Dates: start: 20171110, end: 20171114
  21. SODIUM CHLORIDE [Suspect]
     Active Substance: SODIUM CHLORIDE
     Route: 041
     Dates: start: 20171110, end: 20171110
  22. SODIUM CHLORIDE [Suspect]
     Active Substance: SODIUM CHLORIDE
     Dosage: UNK (1 CYCLE)
     Route: 041
     Dates: start: 20171106, end: 20171106
  23. SODIUM CHLORIDE [Suspect]
     Active Substance: SODIUM CHLORIDE
     Route: 041
     Dates: start: 20171103, end: 20171103
  24. SODIUM CHLORIDE [Suspect]
     Active Substance: SODIUM CHLORIDE
     Dosage: UNK (1 CYCLE)/ START DATE:10-NOV-2017
     Route: 041
     Dates: start: 20171110, end: 20171110
  25. SODIUM CHLORIDE [Suspect]
     Active Substance: SODIUM CHLORIDE
     Route: 041
     Dates: start: 20171107, end: 201711
  26. SODIUM CHLORIDE [Suspect]
     Active Substance: SODIUM CHLORIDE
     Dosage: UNK, 1 CYCLE/ START DATE:03-NOV-2017
     Route: 041
     Dates: start: 20171103, end: 20171106
  27. SODIUM CHLORIDE [Suspect]
     Active Substance: SODIUM CHLORIDE
     Route: 065
  28. VELCADE [Suspect]
     Active Substance: BORTEZOMIB
     Indication: Plasma cell leukaemia
     Dosage: VMP REGIMEN; LYOPHILIZED POWDER, CYCLE 1, ON DAYS 1, 4, 8, 11, 22, 25, 29, 32; CYCLICAL (INCOMPLETE)
     Route: 065
  29. VELCADE [Suspect]
     Active Substance: BORTEZOMIB
     Dosage: VMP REGIMEN, DAY 1 OF CYCLE 2, DOSE ALSO REPORTED AS 2 MG, COMPOUNDED WITH SODIUM CHLORIDE ; CYCL.
     Route: 065
     Dates: start: 20171103, end: 20171103
  30. VELCADE [Suspect]
     Active Substance: BORTEZOMIB
     Dosage: VMP REGIMEN, DAY 4 OF CYCLE 2, DOSE ALSO REPORTED AS 2 MG, COMPOUNDED WITH SODIUM CHLORIDE ; CYCL.
     Route: 058
     Dates: start: 20171106, end: 20171106
  31. VELCADE [Suspect]
     Active Substance: BORTEZOMIB
     Dosage: DOSAGE FORM: LYOPHILIZED POWDER
     Route: 058
     Dates: start: 20171107, end: 201711
  32. VELCADE [Suspect]
     Active Substance: BORTEZOMIB
     Dosage: VMP REGIMEN, DAY 8 OF CYCLE 2, DOSE ALSO REPORTED AS 2 MG, COMPOUNDED WITH SODIUM CHLORIDE ; CYCL.
     Route: 065
     Dates: start: 20171110, end: 20171110
  33. VELCADE [Suspect]
     Active Substance: BORTEZOMIB
     Dosage: DOSAGE FORM: LYOPHILIZED POWDER
     Route: 058
     Dates: start: 20171110, end: 20171114
  34. VELCADE [Suspect]
     Active Substance: BORTEZOMIB
     Dosage: 1.3 MILLIGRAM/SQ. METER (1.3 MG/M2, 1 CYCLE)/START DATE: 10-NOV-2017
     Route: 058
     Dates: end: 20171110
  35. VELCADE [Suspect]
     Active Substance: BORTEZOMIB
     Dosage: 1.3 MILLIGRAM/SQ. METER, CYCLE
     Route: 058
     Dates: end: 20171113
  36. VELCADE [Suspect]
     Active Substance: BORTEZOMIB
     Dosage: (1.8 MG/M2, 1 CYCLE)/START DATE:03-NOV-2017
     Route: 058
     Dates: end: 20171103
  37. VELCADE [Suspect]
     Active Substance: BORTEZOMIB
     Dosage: 1.8 MILLIGRAM/ START DATE:07-NOV-2017
     Route: 058
     Dates: start: 20171107, end: 201711
  38. VELCADE [Suspect]
     Active Substance: BORTEZOMIB
     Dosage: 1.3 MILLIGRAM/SQ. METER, CYCLE
     Route: 058
     Dates: end: 20171103
  39. VELCADE [Suspect]
     Active Substance: BORTEZOMIB
     Dosage: 1.8 MILLIGRAM/ START DATE:03-NOV-2017
     Route: 058
     Dates: start: 20171103, end: 20171103
  40. VELCADE [Suspect]
     Active Substance: BORTEZOMIB
     Route: 058
     Dates: start: 20171107
  41. MELPHALAN [Suspect]
     Active Substance: MELPHALAN
     Indication: Plasma cell leukaemia
     Dosage: CYCLE 1, VMP REGIMEN (1) ; CYCLICAL, DOSAGE FORM: UNSPECIFIED
     Route: 065
  42. MELPHALAN [Suspect]
     Active Substance: MELPHALAN
     Dosage: VMP REGIMEN, DAY 1 TO 4, CYCLE 2
     Route: 065
     Dates: start: 20171103, end: 20171103
  43. MELPHALAN [Suspect]
     Active Substance: MELPHALAN
     Dosage: DOSAGE FORM: UNSPECIFIED
     Route: 065
     Dates: start: 20171107, end: 20171110
  44. MELPHALAN [Suspect]
     Active Substance: MELPHALAN
     Dosage: DOSAGE FORM: UNSPECIFIED
     Route: 065
     Dates: start: 20171110, end: 20171117
  45. MELPHALAN [Suspect]
     Active Substance: MELPHALAN
     Dosage: DOSAGE FORM: UNSPECIFIED
     Route: 065
     Dates: start: 20171106, end: 20171106
  46. MELPHALAN [Suspect]
     Active Substance: MELPHALAN
     Route: 065
     Dates: start: 201711, end: 20171106
  47. MELPHALAN [Suspect]
     Active Substance: MELPHALAN
     Route: 065
     Dates: start: 20171103, end: 20171103
  48. MELPHALAN [Suspect]
     Active Substance: MELPHALAN
     Route: 065
     Dates: start: 20171106, end: 20171106
  49. MELPHALAN [Suspect]
     Active Substance: MELPHALAN
     Route: 065
     Dates: start: 20171110, end: 20171110
  50. MELPHALAN [Suspect]
     Active Substance: MELPHALAN
     Dosage: CYCLE 1, UNKNOWN
     Route: 065
     Dates: end: 20171110
  51. MELPHALAN [Suspect]
     Active Substance: MELPHALAN
     Route: 065
     Dates: start: 20171110, end: 20171114
  52. MELPHALAN [Suspect]
     Active Substance: MELPHALAN
     Dosage: 14 MILLIGRAM/ 1 CYCLE
     Route: 065
     Dates: start: 20171103, end: 20171106
  53. MELPHALAN [Suspect]
     Active Substance: MELPHALAN
     Dosage: 1 CYCLE
     Route: 065
     Dates: start: 20171110
  54. MELPHALAN [Suspect]
     Active Substance: MELPHALAN
     Route: 065
     Dates: start: 201711, end: 20171107
  55. MELPHALAN [Suspect]
     Active Substance: MELPHALAN
     Dosage: 14 MILLIGRAM, 1 CYCLE
     Route: 065
     Dates: start: 20171107, end: 20171110
  56. MELPHALAN [Suspect]
     Active Substance: MELPHALAN
     Route: 065
     Dates: start: 20171103, end: 20171103
  57. MELPHALAN [Suspect]
     Active Substance: MELPHALAN
     Route: 065
     Dates: start: 20171106, end: 20171106
  58. MELPHALAN [Suspect]
     Active Substance: MELPHALAN
     Dosage: 14 MG,QD
     Route: 065
     Dates: start: 20171107, end: 20171110
  59. MELPHALAN [Suspect]
     Active Substance: MELPHALAN
     Route: 065
     Dates: start: 20171107
  60. MELPHALAN [Suspect]
     Active Substance: MELPHALAN
     Route: 065
     Dates: start: 20171110, end: 20171114
  61. MELPHALAN [Suspect]
     Active Substance: MELPHALAN
     Dosage: 1 CYCLE
     Route: 065
     Dates: start: 20171110
  62. MELPHALAN [Suspect]
     Active Substance: MELPHALAN
     Dosage: 1 CYCLE
     Route: 065
     Dates: start: 20171110, end: 20171110
  63. MELPHALAN [Suspect]
     Active Substance: MELPHALAN
     Dosage: 14 MG, TID
     Route: 065
     Dates: start: 20171103, end: 20171106
  64. MELPHALAN [Suspect]
     Active Substance: MELPHALAN
     Route: 065
     Dates: start: 201711, end: 20171107
  65. PREDNISONE [Suspect]
     Active Substance: PREDNISONE
     Indication: Plasma cell leukaemia
     Dosage: DOSAGE FORM: UNSPECIFIED, 70 MG, QD 1 CYCLE
     Route: 065
     Dates: start: 20171103, end: 20171103
  66. PREDNISONE [Suspect]
     Active Substance: PREDNISONE
     Dosage: 70 UNK
     Route: 065
  67. PREDNISONE [Suspect]
     Active Substance: PREDNISONE
     Dosage: 70 MILLIGRAM, QD, 1 CYCLE
     Route: 065
     Dates: start: 20171106, end: 20171106
  68. PREDNISONE [Suspect]
     Active Substance: PREDNISONE
     Dosage: 70 MG, QD (1CYCLE)
     Route: 065
  69. PREDNISONE [Suspect]
     Active Substance: PREDNISONE
     Dosage: 70 MG, UNKNOWN
     Route: 065
  70. DURAGESIC [Suspect]
     Active Substance: FENTANYL
     Indication: Product used for unknown indication
     Dosage: 12 MICROGRAM
     Route: 062
     Dates: start: 20171108
  71. DURAGESIC [Suspect]
     Active Substance: FENTANYL
     Dosage: 12 MICROGRAM
     Route: 062
     Dates: start: 20171108
  72. DURAGESIC [Suspect]
     Active Substance: FENTANYL
     Route: 062
     Dates: start: 20171108
  73. DURAGESIC [Suspect]
     Active Substance: FENTANYL
     Route: 062
     Dates: start: 20171108
  74. DURAGESIC [Suspect]
     Active Substance: FENTANYL
     Dosage: UNK, IN 1 HOUR (START DATE: 08/NOV/2017)
     Route: 062
  75. DURAGESIC [Suspect]
     Active Substance: FENTANYL
     Route: 062
     Dates: start: 20171108
  76. DURAGESIC [Suspect]
     Active Substance: FENTANYL
     Dosage: 1 DF QH FROM START DATE: 08/NOV/2017
     Route: 062
     Dates: start: 20171108
  77. ALLOPURINOL [Suspect]
     Active Substance: ALLOPURINOL
     Indication: Product used for unknown indication
     Dosage: 30 MILLIGRAM, DAILY MEDICATION ERROR, MISUSE, ABUSE, OFF LABEL USE
     Route: 065
     Dates: start: 20171104, end: 20171120
  78. ALLOPURINOL [Suspect]
     Active Substance: ALLOPURINOL
     Dosage: DOSAGE FORM: UNSPECIFIED
     Route: 065
     Dates: start: 20171120, end: 20171120
  79. ALLOPURINOL [Suspect]
     Active Substance: ALLOPURINOL
     Dosage: 300 UNK
     Route: 065
     Dates: start: 20181120
  80. ALLOPURINOL [Suspect]
     Active Substance: ALLOPURINOL
     Dosage: 300 MILLIGRAM (THERAPY IS ONGOING)
     Route: 065
     Dates: start: 20171120
  81. ALLOPURINOL [Suspect]
     Active Substance: ALLOPURINOL
     Dosage: DOSAGE FORM: UNSPECIFIED
     Route: 065
     Dates: end: 20171120
  82. ALLOPURINOL [Suspect]
     Active Substance: ALLOPURINOL
     Dosage: 300 MILLIGRAM DAILY; MEDICATION ERROR, MISUSE, ABUSE, OFF LABEL USE
     Route: 065
     Dates: start: 20171104
  83. ALLOPURINOL [Suspect]
     Active Substance: ALLOPURINOL
     Dosage: 300 MILLIGRAM DAILY;
     Route: 065
     Dates: start: 20171104, end: 20171120
  84. ALLOPURINOL [Suspect]
     Active Substance: ALLOPURINOL
     Dosage: 30 MILLIGRAM,
     Route: 065
     Dates: start: 20171120
  85. ALLOPURINOL [Suspect]
     Active Substance: ALLOPURINOL
     Dosage: 300 MILLIGRAM DAILY;
     Route: 065
     Dates: start: 20171104, end: 20171120
  86. ALLOPURINOL [Suspect]
     Active Substance: ALLOPURINOL
     Dosage: 300 MILLIGRAM QD
     Route: 065
  87. ALLOPURINOL [Suspect]
     Active Substance: ALLOPURINOL
     Dosage: 300 MG, QD, INJECTION
     Route: 065
  88. ALLOPURINOL [Suspect]
     Active Substance: ALLOPURINOL
     Route: 065
     Dates: start: 20171104, end: 20171120
  89. BORTEZOMIB [Suspect]
     Active Substance: BORTEZOMIB
     Indication: Plasma cell leukaemia
     Dosage: 1.3 MG/M2
     Route: 058
     Dates: start: 20171103, end: 20171103
  90. BORTEZOMIB [Suspect]
     Active Substance: BORTEZOMIB
     Dosage: 1.3 MG/M2, 1 CYCLE
     Route: 058
     Dates: start: 20171106, end: 20171106
  91. BORTEZOMIB [Suspect]
     Active Substance: BORTEZOMIB
     Dosage: FROM 07-NOV-2017 TO NOV-2017
     Route: 058
     Dates: start: 20171107, end: 201711
  92. BORTEZOMIB [Suspect]
     Active Substance: BORTEZOMIB
     Dosage: 1.3 MILLIGRAM/SQ. METER ((EVERY CYCLE))
     Route: 058
     Dates: start: 20171110, end: 20171110
  93. BORTEZOMIB [Suspect]
     Active Substance: BORTEZOMIB
     Dosage: 1.8 MG/M2, 1 CYCLE, LYOPHILIZED POWDER
     Route: 058
     Dates: start: 20171110, end: 20171114
  94. BORTEZOMIB [Suspect]
     Active Substance: BORTEZOMIB
     Dosage: 1.3 MG/M2, 1 CYCLE
     Route: 065
     Dates: start: 20171110, end: 20171110
  95. BORTEZOMIB [Suspect]
     Active Substance: BORTEZOMIB
     Dosage: 1.8 MG/M2
     Route: 058
     Dates: start: 20171103, end: 20171103
  96. BORTEZOMIB [Suspect]
     Active Substance: BORTEZOMIB
     Dosage: 1.8 MG/M2 Q_CYCLE
     Route: 058
     Dates: start: 20171114, end: 20171114
  97. BORTEZOMIB [Suspect]
     Active Substance: BORTEZOMIB
     Dosage: 1.8 MILLIGRAM/ START DATE:03-NOV-2017
     Route: 058
     Dates: start: 20171103, end: 20171103
  98. BORTEZOMIB [Suspect]
     Active Substance: BORTEZOMIB
     Dosage: 1 MG/M2 DAILY
     Route: 058
     Dates: start: 20171106, end: 20171106
  99. BORTEZOMIB [Suspect]
     Active Substance: BORTEZOMIB
     Dosage: 2 MG/M2, QD
     Route: 058
     Dates: start: 20171107, end: 201711
  100. BORTEZOMIB [Suspect]
     Active Substance: BORTEZOMIB
     Dosage: 1.8 MG/M2,1 CYCLE
     Route: 065
  101. BORTEZOMIB [Suspect]
     Active Substance: BORTEZOMIB
     Dosage: 2.5 MG/ML
     Route: 058
     Dates: start: 20171110, end: 20171114
  102. BORTEZOMIB [Suspect]
     Active Substance: BORTEZOMIB
     Route: 065
  103. BORTEZOMIB [Suspect]
     Active Substance: BORTEZOMIB
     Dosage: 1.8 MILLIGRAM/ START DATE:10-NOV-2017
     Route: 058
     Dates: start: 20171110, end: 20171114
  104. BORTEZOMIB [Suspect]
     Active Substance: BORTEZOMIB
     Dosage: 1.8 MILLIGRAM/ START DATE:10-NOV-2017
     Route: 065
     Dates: start: 20171110, end: 20171114
  105. FENTANYL [Suspect]
     Active Substance: FENTANYL
     Indication: Product used for unknown indication
     Dosage: 12 UG QH
     Route: 062
     Dates: start: 20201108
  106. FENTANYL [Suspect]
     Active Substance: FENTANYL
     Route: 065
     Dates: start: 20171108
  107. FENTANYL [Suspect]
     Active Substance: FENTANYL
     Route: 055
     Dates: start: 20171108
  108. FENTANYL [Suspect]
     Active Substance: FENTANYL
     Dosage: 12 UNK
     Route: 055
  109. FENTANYL [Suspect]
     Active Substance: FENTANYL
     Route: 062
     Dates: start: 20171108
  110. FENTANYL [Suspect]
     Active Substance: FENTANYL
     Route: 062
  111. FENTANYL [Suspect]
     Active Substance: FENTANYL
     Route: 065
  112. SERTRALINE [Suspect]
     Active Substance: SERTRALINE HYDROCHLORIDE
     Indication: Product used for unknown indication
     Dosage: 50 MILLIGRAM, QD, ONCE A DAY
     Route: 065
  113. SERTRALINE [Suspect]
     Active Substance: SERTRALINE HYDROCHLORIDE
     Route: 065
  114. SERTRALINE [Suspect]
     Active Substance: SERTRALINE HYDROCHLORIDE
     Route: 041
     Dates: start: 20171103, end: 20171106
  115. BENDROFLUMETHIAZIDE [Suspect]
     Active Substance: BENDROFLUMETHIAZIDE
     Indication: Product used for unknown indication
     Dosage: QD, 2.5 MILLIGRAM, ONCE A DAY
     Route: 065
  116. BENDROFLUMETHIAZIDE [Suspect]
     Active Substance: BENDROFLUMETHIAZIDE
     Dosage: QD
     Route: 065
     Dates: start: 20171107, end: 201711
  117. BENDROFLUMETHIAZIDE [Suspect]
     Active Substance: BENDROFLUMETHIAZIDE
     Dosage: QD
     Route: 065
     Dates: start: 20171110, end: 20171114
  118. BENDROFLUMETHIAZIDE [Suspect]
     Active Substance: BENDROFLUMETHIAZIDE
     Dosage: QD
     Route: 065
     Dates: start: 20171103, end: 20171103
  119. BENDROFLUMETHIAZIDE [Suspect]
     Active Substance: BENDROFLUMETHIAZIDE
     Dosage: 1.8 MG/M2 Q CYCLE/1.3 MG/M2 DAILY
     Route: 065
     Dates: start: 20171103, end: 20171103
  120. BENDROFLUMETHIAZIDE [Suspect]
     Active Substance: BENDROFLUMETHIAZIDE
     Dosage: 3 MILLIGRAM
     Route: 065
  121. BENDROFLUMETHIAZIDE [Suspect]
     Active Substance: BENDROFLUMETHIAZIDE
     Dosage: 2 MILLIGRAM
     Route: 065
     Dates: start: 20171107, end: 201711
  122. BENDROFLUMETHIAZIDE [Suspect]
     Active Substance: BENDROFLUMETHIAZIDE
     Dosage: 2 MILLIGRAM
     Route: 065
     Dates: start: 20171103, end: 20171103
  123. BENDROFLUMETHIAZIDE [Suspect]
     Active Substance: BENDROFLUMETHIAZIDE
     Route: 065
  124. BENDROFLUMETHIAZIDE [Suspect]
     Active Substance: BENDROFLUMETHIAZIDE
     Dosage: 2 MILLIGRAM
     Route: 065
     Dates: start: 20171110, end: 20171114
  125. BENDROFLUMETHIAZIDE [Suspect]
     Active Substance: BENDROFLUMETHIAZIDE
     Dosage: 3 MG (UNK1.8 MG/M2 Q_CYCLE / 1.3 MG/M2 DAILY /1.8UNK)
     Route: 065
     Dates: start: 20171107
  126. BENDROFLUMETHIAZIDE [Suspect]
     Active Substance: BENDROFLUMETHIAZIDE
     Dosage: 2 MILLIGRAM
     Route: 065
     Dates: start: 20171107, end: 20171114
  127. OMEPRAZOLE [Suspect]
     Active Substance: OMEPRAZOLE
     Indication: Product used for unknown indication
     Dosage: QD, DOSAGE FORM: UNSPECIFIED (EVERY MORNING)
     Route: 048
  128. OMEPRAZOLE [Suspect]
     Active Substance: OMEPRAZOLE
     Dosage: 20 MG, QD, UNSPECIFIED, EVERY MORNING
     Route: 048
  129. OMEPRAZOLE [Suspect]
     Active Substance: OMEPRAZOLE
     Dosage: 10 MG, QD
     Route: 065
  130. OMEPRAZOLE [Suspect]
     Active Substance: OMEPRAZOLE
     Dosage: 20 MG, QD
     Route: 065
  131. OMEPRAZOLE [Suspect]
     Active Substance: OMEPRAZOLE
     Dosage: 20 MG, QD, UNSPECIFIED, EVERY MORNING
     Route: 065
  132. FENTANYL [Suspect]
     Active Substance: FENTANYL
     Indication: Product used for unknown indication
     Dosage: 12 MICROGRAM
     Route: 062
     Dates: start: 20171108
  133. FENTANYL [Suspect]
     Active Substance: FENTANYL
     Indication: Product used for unknown indication
     Route: 062
     Dates: start: 20171108
  134. FENTANYL [Suspect]
     Active Substance: FENTANYL
     Route: 062
     Dates: start: 20171108
  135. FENTANYL [Suspect]
     Active Substance: FENTANYL
     Route: 062
  136. FENTANYL [Suspect]
     Active Substance: FENTANYL
     Route: 062
  137. FENTANYL CITRATE [Suspect]
     Active Substance: FENTANYL CITRATE
     Indication: Product used for unknown indication
     Route: 055
     Dates: start: 20171108
  138. METOCLOPRAMIDE [Suspect]
     Active Substance: METOCLOPRAMIDE
     Indication: Product used for unknown indication
     Dosage: 10 MILLIGRAM, AS NECESSARY?METOCLOPRAMIDE 5 MG/ML SOLUTION FOR INJECTION
     Route: 065
  139. RAMIPRIL [Concomitant]
     Active Substance: RAMIPRIL
     Indication: Product used for unknown indication
     Dosage: 10 MG, QD, (UNSPECIFIED, EVERY MORNING)
  140. METOCLOPRAMIDE HYDROCHLORIDE [Concomitant]
     Active Substance: METOCLOPRAMIDE HYDROCHLORIDE
     Indication: Product used for unknown indication
     Dosage: AS NECESSARY
  141. BENDROFLUMETHIAZIDE [Concomitant]
     Active Substance: BENDROFLUMETHIAZIDE
     Indication: Product used for unknown indication
     Dosage: 2.5 MG, QD
  142. OMEPRAZOLE [Concomitant]
     Active Substance: OMEPRAZOLE
     Indication: Product used for unknown indication
     Dosage: 10 MG, QD
  143. OMEPRAZOLE [Concomitant]
     Active Substance: OMEPRAZOLE
  144. SERTRALINE [Concomitant]
     Active Substance: SERTRALINE HYDROCHLORIDE
     Indication: Product used for unknown indication
     Dosage: UNK
  145. METOCLOPRAMIDE [Concomitant]
     Active Substance: METOCLOPRAMIDE
     Indication: Product used for unknown indication
     Dosage: 20 MG, QD
  146. METOCLOPRAMIDE [Concomitant]
     Active Substance: METOCLOPRAMIDE
     Dosage: 10 MG, PRN
  147. DEXAMETHASONE [Concomitant]
     Active Substance: DEXAMETHASONE
     Indication: Product used for unknown indication

REACTIONS (17)
  - Disorientation [Recovered/Resolved]
  - Disturbance in social behaviour [Recovered/Resolved]
  - Paranoia [Recovered/Resolved]
  - Abnormal behaviour [Recovered/Resolved]
  - Confusional state [Recovered/Resolved]
  - Emotional distress [Not Recovered/Not Resolved]
  - Agitation [Recovered/Resolved]
  - Hallucination [Recovered/Resolved]
  - Emotional distress [Not Recovered/Not Resolved]
  - Abnormal behaviour [Recovered/Resolved]
  - Incorrect route of product administration [Unknown]
  - Drug abuse [Unknown]
  - Product use in unapproved indication [Unknown]
  - Intentional product misuse [Unknown]
  - Off label use [Unknown]
  - Medication error [Unknown]
  - Intentional product misuse [Unknown]

NARRATIVE: CASE EVENT DATE: 20171107
